FAERS Safety Report 10406328 (Version 1)
Quarter: 2014Q1

REPORT INFORMATION
  Report Type: Spontaneous
  Country: US (occurrence: None)
  Receive Date: 20140228
  Receipt Date: 20140228
  Transmission Date: 20141002
  Serious: No
  Sender: FDA-Public Use
  Company Number: 225042LEO

PATIENT
  Sex: Female

DRUGS (1)
  1. PICATO [Suspect]
     Indication: ACTINIC KERATOSIS
     Route: 061
     Dates: start: 20131211

REACTIONS (5)
  - Drug ineffective [None]
  - Product physical consistency issue [None]
  - Application site erythema [None]
  - Application site pruritus [None]
  - Inappropriate schedule of drug administration [None]
